FAERS Safety Report 10042798 (Version 1)
Quarter: 2014Q1

REPORT INFORMATION
  Report Type: Spontaneous
  Country: US (occurrence: US)
  Receive Date: 20140327
  Receipt Date: 20140327
  Transmission Date: 20141002
  Serious: Yes (Death, Other)
  Sender: FDA-Public Use
  Company Number: US-TAKEDA-2014TUS002358

PATIENT
  Sex: 0

DRUGS (1)
  1. BRINTELLIX [Suspect]

REACTIONS (1)
  - Completed suicide [Fatal]
